FAERS Safety Report 8216900-0 (Version None)
Quarter: 2012Q1

REPORT INFORMATION
  Report Type: 
  Country: None (occurrence: None)
  Receive Date: 20120317
  Receipt Date: 20120308
  Transmission Date: 20120608
  Serious: Yes (Hospitalization)
  Sender: FDA-Public Use
  Company Number: JP-VERTEX PHARMACEUTICALS INC.-AE-2012-003588

PATIENT
  Age: 50 Year
  Sex: Male

DRUGS (6)
  1. ALLEGRA [Concomitant]
  2. PEGINTERFERON [Concomitant]
     Indication: HEPATITIS C
     Route: 058
     Dates: start: 20120119
  3. RIBAVIRIN [Concomitant]
     Indication: HEPATITIS C
     Route: 048
     Dates: start: 20120119, end: 20120215
  4. RIBAVIRIN [Concomitant]
     Route: 048
     Dates: start: 20120216, end: 20120305
  5. TELAVIC (TELAPREVIR) [Suspect]
     Indication: HEPATITIS C
     Route: 048
     Dates: start: 20120119, end: 20120305
  6. XYZAL [Concomitant]

REACTIONS (1)
  - DRUG ERUPTION [None]
